FAERS Safety Report 4767749-2 (Version None)
Quarter: 2005Q3

REPORT INFORMATION
  Report Type: 
  Country: None (occurrence: None)
  Receive Date: 20050912
  Receipt Date: 20050831
  Transmission Date: 20060218
  Serious: Yes (Death, Hospitalization, Other)
  Sender: FDA-Public Use
  Company Number: 2004008078

PATIENT
  Age: 58 Year
  Sex: Male

DRUGS (9)
  1. ATARAX [Suspect]
     Indication: ILL-DEFINED DISORDER
     Dosage: 25 MG, ORAL
     Route: 048
     Dates: start: 20030912
  2. ALDACTONE [Suspect]
     Indication: ILL-DEFINED DISORDER
     Dosage: 150 MG, ORAL
     Route: 048
     Dates: start: 20030904
  3. FLUOXETINE (FLUOXETINE HYDROCHLORIDE) (FLUOXETINE) [Suspect]
     Indication: ILL-DEFINED DISORDER
     Dosage: 20 MG, ORAL
     Route: 048
     Dates: start: 20030906
  4. OXAZEPAM (OXAZEPAM) (OXAZEPAM) [Suspect]
     Indication: ILL-DEFINED DISORDER
     Dosage: 25 MG, ORAL
     Route: 048
     Dates: start: 20030904
  5. HEXAQUINE (NIAOULI OIL, QUININE BENZOATE, THIAMINE HYDROCHLORIDE) [Suspect]
     Indication: ILL-DEFINED DISORDER
     Dosage: ORAL
     Route: 048
     Dates: start: 20030925, end: 20031001
  6. FUROSEMIDE [Suspect]
     Indication: ILL-DEFINED DISORDER
     Dosage: 100 MG, ORAL
     Route: 048
     Dates: start: 20030904
  7. MAGNESIUM OXIDE (MAGNESIUM OXIDE) [Concomitant]
  8. VITAMIN B1 AND B6 (PYRIDOXINE, THIAMINE) [Concomitant]
  9. VITAMIN B12 [Concomitant]

REACTIONS (8)
  - DERMATITIS EXFOLIATIVE [None]
  - LIVIDITY [None]
  - PSORIASIS [None]
  - PURPURA [None]
  - RASH ERYTHEMATOUS [None]
  - REFUSAL OF TREATMENT BY PATIENT [None]
  - VITAMIN D DEFICIENCY [None]
  - ZINC DEFICIENCY [None]
